FAERS Safety Report 6112854-1 (Version None)
Quarter: 2009Q1

REPORT INFORMATION
  Report Type: 
  Country: None (occurrence: None)
  Receive Date: 20090310
  Receipt Date: 20090227
  Transmission Date: 20090719
  Serious: Yes (Death)
  Sender: FDA-Public Use
  Company Number: B0563493A

PATIENT
  Age: 58 Year
  Sex: Male

DRUGS (1)
  1. AMOXICILLIN TRIHYDRATE [Suspect]

REACTIONS (3)
  - CHOLESTASIS [None]
  - CRYPTOGENIC CIRRHOSIS [None]
  - LIVER INJURY [None]
